FAERS Safety Report 8211764 (Version 2)
Quarter: 2013Q1

REPORT INFORMATION
  Report Type: Spontaneous
  Country: US (occurrence: None)
  Receive Date: 20111020
  Receipt Date: 20121017
  Transmission Date: 20140127
  Serious: Yes (Other)
  Sender: FDA-Public Use
  Company Number: 2011MA014739

PATIENT
  Sex: Male
  Weight: 83.01 kg

DRUGS (19)
  1. METOCLOPRAMIDE [Suspect]
     Indication: GASTROOESOPHAGEAL REFLUX DISEASE
     Dates: start: 19890315, end: 2004
  2. ACETAMINOPHEN W/ CODEINE [Concomitant]
  3. ANTIBIOTICS (UNSPECIFIED) [Concomitant]
  4. ASA/BUTALBITAL/CAFFEINE/CODEINE [Concomitant]
  5. ATROVENT [Concomitant]
  6. CONSTANT-T [Concomitant]
  7. DIABETA [Concomitant]
  8. HYDROXYZINE [Concomitant]
  9. HYDROXYZINE [Concomitant]
  10. IBUPROFEN [Concomitant]
  11. ISOPTIN [Concomitant]
  12. LANOXIN [Concomitant]
  13. LOPID [Concomitant]
  14. LOTENSIN [Concomitant]
  15. LORAZEPAM [Concomitant]
  16. PREDNIOSONE [Concomitant]
  17. SULFAMETHOXAZOLE/TRIMETHOPRIM [Concomitant]
  18. TENORMIN [Concomitant]
  19. VITAMIN E [Concomitant]

REACTIONS (23)
  - Tardive dyskinesia [None]
  - Economic problem [None]
  - Emotional disorder [None]
  - Chronic obstructive pulmonary disease [None]
  - Asthma [None]
  - Bronchitis [None]
  - Condition aggravated [None]
  - Anxiety [None]
  - Diabetes mellitus inadequate control [None]
  - Hypertension [None]
  - Hyperlipidaemia [None]
  - Back pain [None]
  - Radiculopathy [None]
  - Depression [None]
  - Cardiac failure congestive [None]
  - Coronary artery disease [None]
  - Osteoarthritis [None]
  - Polyneuropathy [None]
  - Bronchitis chronic [None]
  - Atrial fibrillation [None]
  - Cerebrovascular accident [None]
  - Tremor [None]
  - Herpes virus infection [None]
